FAERS Safety Report 19387187 (Version 2)
Quarter: 2021Q2

REPORT INFORMATION
  Report Type: Report from Study
  Country: CN (occurrence: CN)
  Receive Date: 20210608
  Receipt Date: 20210625
  Transmission Date: 20210717
  Serious: Yes (Hospitalization)
  Sender: FDA-Public Use
  Company Number: CN-EMD SERONO-9241645

PATIENT
  Age: 34 Year
  Sex: Female
  Weight: 75 kg

DRUGS (4)
  1. GONAL?F [Suspect]
     Active Substance: FOLLITROPIN
     Dates: start: 2020, end: 20200706
  2. DECAPEPTYL                         /00486501/ [Suspect]
     Active Substance: GONADORELIN
     Indication: CONTROLLED OVARIAN STIMULATION
     Dates: start: 20200611, end: 20200618
  3. OVIDREL [Suspect]
     Active Substance: CHORIOGONADOTROPIN ALFA
     Indication: CONTROLLED OVARIAN STIMULATION
     Dates: start: 20200707, end: 20200707
  4. GONAL?F [Suspect]
     Active Substance: FOLLITROPIN
     Indication: CONTROLLED OVARIAN STIMULATION
     Dates: start: 20200627, end: 2020

REACTIONS (2)
  - Abortion threatened [Recovered/Resolved]
  - Cervical incompetence [Recovered/Resolved]

NARRATIVE: CASE EVENT DATE: 20201121
